FAERS Safety Report 8611934-6 (Version None)
Quarter: 2012Q3

REPORT INFORMATION
  Report Type: 
  Country: None (occurrence: None)
  Receive Date: 20120822
  Receipt Date: 20120815
  Transmission Date: 20120928
  Serious: Yes (Hospitalization, Other)
  Sender: FDA-Public Use
  Company Number: DE-JNJFOC-20120709475

PATIENT
  Sex: Female
  Weight: 68 kg

DRUGS (11)
  1. AMLODIPINE [Concomitant]
  2. XARELTO [Suspect]
     Indication: CEREBROVASCULAR ACCIDENT PROPHYLAXIS
     Route: 048
     Dates: start: 20120412
  3. PANTOPRAZOLE [Concomitant]
  4. XARELTO [Suspect]
     Indication: ATRIAL FIBRILLATION
     Route: 048
     Dates: start: 20120412
  5. NALBUPHINE HYDROCHLORIDE [Concomitant]
  6. REPAGLINIDE [Concomitant]
  7. SIMVASTATIN [Concomitant]
  8. NOVALGIN [Concomitant]
  9. LIMPTAR [Concomitant]
  10. BISOPROLOL FUMARATE [Concomitant]
  11. ALLOPURINOL [Concomitant]

REACTIONS (1)
  - ISCHAEMIC STROKE [None]
